FAERS Safety Report 10255534 (Version 1)
Quarter: 2014Q2

REPORT INFORMATION
  Report Type: Spontaneous
  Country: ES (occurrence: ES)
  Receive Date: 20140624
  Receipt Date: 20140624
  Transmission Date: 20141212
  Serious: Yes (Other)
  Sender: FDA-Public Use
  Company Number: ES-JNJFOC-20140613742

PATIENT
  Sex: Female

DRUGS (4)
  1. PALEXIA [Suspect]
     Indication: PROCEDURAL PAIN
     Route: 048
  2. TRAMADOL HYDROCHLORIDE [Concomitant]
     Indication: PROCEDURAL PAIN
     Route: 065
  3. CLONAZEPAM [Concomitant]
     Indication: PRODUCT USED FOR UNKNOWN INDICATION
     Route: 065
  4. DICLOFENAC SODIUM [Concomitant]
     Indication: PROCEDURAL PAIN
     Route: 065

REACTIONS (3)
  - Oedema peripheral [Recovered/Resolved]
  - Nausea [Recovered/Resolved]
  - Pulmonary embolism [Unknown]
